FAERS Safety Report 4600028-2 (Version None)
Quarter: 2005Q1

REPORT INFORMATION
  Report Type: 
  Country: None (occurrence: None)
  Receive Date: 20050302
  Receipt Date: 20050302
  Transmission Date: 20050727
  Serious: Yes (Other)
  Sender: FDA-Public Use
  Company Number: None

PATIENT
  Sex: Male
  Weight: 90.7194 kg

DRUGS (7)
  1. OXYCODONE HCL [Suspect]
     Indication: BACK PAIN
     Dosage: 80 MG PO Q 12 HOURS
     Route: 048
  2. OXYCODONE HCL [Suspect]
     Indication: INJURY
     Dosage: 80 MG PO Q 12 HOURS
     Route: 048
  3. OXYCODONE HCL [Suspect]
     Indication: SURGERY
     Dosage: 80 MG PO Q 12 HOURS
     Route: 048
  4. PERCOCET [Concomitant]
  5. AMITRIPTYLINE HCL [Concomitant]
  6. DIAZEPAM [Concomitant]
  7. OMEPRAZOLE [Concomitant]

REACTIONS (2)
  - INADEQUATE ANALGESIA [None]
  - PHARMACEUTICAL PRODUCT COMPLAINT [None]
